FAERS Safety Report 9211088 (Version 1)
Quarter: 2013Q2

REPORT INFORMATION
  Report Type: Spontaneous
  Country: US (occurrence: US)
  Receive Date: 20130404
  Receipt Date: 20130404
  Transmission Date: 20140414
  Serious: Yes (Hospitalization)
  Sender: FDA-Public Use
  Company Number: CHPA2013US005721

PATIENT
  Sex: Male

DRUGS (4)
  1. TRIAMINIC [Suspect]
     Indication: ANALGESIC THERAPY
     Dosage: APPROPRIATE AMOUNTS, UNK
  2. TRIAMINIC [Suspect]
     Dosage: APPROPRIATE AMOUNTS WITHIN THE RECOMMENDED DAILY DOSES, UNK
     Route: 048
     Dates: start: 201005
  3. CHILDREN^S TYLENOL [Suspect]
     Indication: ANALGESIC THERAPY
     Dosage: APPROPRIATE AMOUNTS, UNK
  4. CHILDREN^S TYLENOL [Suspect]
     Dosage: APPROPRIATE AMOUNTS WITHIN THE RECOMMENDED DAILY DOSES, UNK
     Dates: start: 201005

REACTIONS (4)
  - Acute hepatic failure [Unknown]
  - Injury [Unknown]
  - General physical health deterioration [Unknown]
  - Pain [Unknown]
